FAERS Safety Report 13419652 (Version 6)
Quarter: 2018Q4

REPORT INFORMATION
  Report Type: Spontaneous
  Country: JP (occurrence: JP)
  Receive Date: 20170407
  Receipt Date: 20181102
  Transmission Date: 20190204
  Serious: Yes (Hospitalization)
  Sender: FDA-Public Use
  Company Number: JP-ROCHE-1917630

PATIENT
  Age: 47 Year
  Sex: Female
  Weight: 56 kg

DRUGS (10)
  1. G-LASTA [Suspect]
     Active Substance: PEGFILGRASTIM
     Indication: PRODUCT USED FOR UNKNOWN INDICATION
     Route: 058
  2. NEUTROGIN [Suspect]
     Active Substance: LENOGRASTIM
     Indication: PRODUCT USED FOR UNKNOWN INDICATION
     Dosage: DOSAGE IS UNCERTAIN.
     Route: 065
  3. AVASTIN [Suspect]
     Active Substance: BEVACIZUMAB
     Indication: OVARIAN CANCER
     Route: 041
     Dates: start: 20170120
  4. GRAN [Suspect]
     Active Substance: FILGRASTIM
     Route: 058
     Dates: start: 20170317
  5. GRAN [Suspect]
     Active Substance: FILGRASTIM
     Indication: PRODUCT USED FOR UNKNOWN INDICATION
     Route: 058
     Dates: start: 20170316
  6. PARAPLATIN [Suspect]
     Active Substance: CARBOPLATIN
     Dosage: DATE OF LAST DOSE:07/MAR/2017?DOSE: AUC=5
     Route: 041
  7. AVASTIN [Suspect]
     Active Substance: BEVACIZUMAB
     Route: 041
     Dates: start: 20170307
  8. TAXOL [Suspect]
     Active Substance: PACLITAXEL
     Indication: OVARIAN CANCER
     Route: 041
     Dates: start: 20170106
  9. TAXOL [Suspect]
     Active Substance: PACLITAXEL
     Dosage: DATE OF LAST DOSE:07/MAR/2017
     Route: 041
  10. PARAPLATIN [Suspect]
     Active Substance: CARBOPLATIN
     Indication: OVARIAN CANCER
     Dosage: DOSE: AUC=6
     Route: 041
     Dates: start: 20170106

REACTIONS (2)
  - Febrile neutropenia [Recovered/Resolved]
  - Aortitis [Recovered/Resolved]

NARRATIVE: CASE EVENT DATE: 201703
